APPROVED DRUG PRODUCT: PENICILLIN
Active Ingredient: PENICILLIN G POTASSIUM
Strength: 200,000 UNITS/5ML
Dosage Form/Route: FOR SOLUTION;ORAL
Application: A060307 | Product #002
Applicant: TEVA PHARMACEUTICALS USA INC
Approved: Approved Prior to Jan 1, 1982 | RLD: No | RS: No | Type: DISCN